FAERS Safety Report 7409161-3 (Version None)
Quarter: 2011Q2

REPORT INFORMATION
  Report Type: 
  Country: None (occurrence: None)
  Receive Date: 20110412
  Receipt Date: 20110406
  Transmission Date: 20111010
  Serious: Yes (Other)
  Sender: FDA-Public Use
  Company Number: US-ABBOTT-11P-163-0717454-00

PATIENT
  Sex: Female
  Weight: 78.088 kg

DRUGS (20)
  1. HUMIRA [Suspect]
     Indication: RHEUMATOID ARTHRITIS
     Route: 058
     Dates: start: 20090101
  2. SULFASALAZINE AC [Concomitant]
     Indication: PRODUCT USED FOR UNKNOWN INDICATION
  3. METHOTREXATE [Concomitant]
     Indication: PRODUCT USED FOR UNKNOWN INDICATION
  4. CRESTOR [Concomitant]
     Indication: BLOOD CHOLESTEROL
  5. TRICOR [Concomitant]
     Indication: BLOOD CHOLESTEROL
  6. TOPAMAX [Concomitant]
     Indication: MIGRAINE
  7. ESTRADIOL [Concomitant]
     Indication: PRODUCT USED FOR UNKNOWN INDICATION
  8. VIT B12 [Concomitant]
     Indication: PRODUCT USED FOR UNKNOWN INDICATION
  9. POTASSIUM [Concomitant]
     Indication: PRODUCT USED FOR UNKNOWN INDICATION
  10. VIT B12 INJECTION [Concomitant]
     Indication: PRODUCT USED FOR UNKNOWN INDICATION
     Route: 050
  11. UNKNOWN NASAL SPRAY [Concomitant]
     Indication: SEASONAL ALLERGY
  12. ZETIA [Concomitant]
     Indication: PRODUCT USED FOR UNKNOWN INDICATION
  13. SINGULAIR [Concomitant]
     Indication: WHEEZING
  14. CALCIUM [Concomitant]
     Indication: PRODUCT USED FOR UNKNOWN INDICATION
  15. BIAXIN [Suspect]
     Indication: PRODUCT USED FOR UNKNOWN INDICATION
  16. LYRICA [Concomitant]
     Indication: FIBROMYALGIA
  17. PLAQUENIL [Concomitant]
     Indication: PRODUCT USED FOR UNKNOWN INDICATION
  18. MELOXICAM [Concomitant]
     Indication: PRODUCT USED FOR UNKNOWN INDICATION
  19. FOLIC ACID [Concomitant]
     Indication: PRODUCT USED FOR UNKNOWN INDICATION
  20. UNKNOWN EYE DROPS [Concomitant]
     Indication: HYPERSENSITIVITY

REACTIONS (5)
  - MONARTHRITIS [None]
  - RASH [None]
  - MENISCUS LESION [None]
  - HOT FLUSH [None]
  - SINUSITIS [None]
